FAERS Safety Report 20091827 (Version 1)
Quarter: 2021Q4

REPORT INFORMATION
  Report Type: Spontaneous
  Country: US (occurrence: US)
  Receive Date: 20211119
  Receipt Date: 20211119
  Transmission Date: 20220303
  Serious: No
  Sender: FDA-Public Use
  Company Number: US-APOTEX-2021AP045361

PATIENT
  Age: 37 Year
  Sex: Male

DRUGS (10)
  1. CARBAMAZEPINE [Interacting]
     Active Substance: CARBAMAZEPINE
     Indication: Mania
     Dosage: 200 MILLIGRAM, BID
     Route: 065
  2. CARBAMAZEPINE [Interacting]
     Active Substance: CARBAMAZEPINE
     Dosage: 400 MILLIGRAM, BID
     Route: 065
  3. CARBAMAZEPINE [Interacting]
     Active Substance: CARBAMAZEPINE
     Dosage: 400 MILLIGRAM, Q.AM AND 600 MILLIGRAM, Q.H.S
     Route: 065
  4. CARBAMAZEPINE [Interacting]
     Active Substance: CARBAMAZEPINE
     Dosage: 400MILLIGRAM, Q.AM 800 MILLIGRAM, Q.H.S.
     Route: 065
  5. CARBAMAZEPINE [Interacting]
     Active Substance: CARBAMAZEPINE
     Dosage: 200 MILLIGRAM
     Route: 065
  6. CANNABIS SATIVA SUBSP. INDICA TOP [Interacting]
     Active Substance: CANNABIS SATIVA SUBSP. INDICA TOP
     Indication: Product used for unknown indication
     Dosage: SMOKING 1-2 JOINTS DAILY
     Route: 065
  7. CANNABIS SATIVA SUBSP. INDICA TOP [Interacting]
     Active Substance: CANNABIS SATIVA SUBSP. INDICA TOP
     Dosage: SMOKING 1 JOINT DAILY
     Route: 065
  8. OLANZAPINE [Concomitant]
     Active Substance: OLANZAPINE
     Indication: Mania
     Dosage: 5 MILLIGRAM, Q.H.S.
     Route: 065
  9. OLANZAPINE [Concomitant]
     Active Substance: OLANZAPINE
     Dosage: 20 MILLIGRAM
     Route: 065
  10. TEMAZEPAM [Concomitant]
     Active Substance: TEMAZEPAM
     Indication: Sleep disorder
     Dosage: 15 MILLIGRAM
     Route: 065

REACTIONS (2)
  - Anticonvulsant drug level increased [Recovering/Resolving]
  - Drug interaction [Unknown]
